FAERS Safety Report 10372880 (Version 1)
Quarter: 2014Q3

REPORT INFORMATION
  Report Type: Spontaneous
  Country: US (occurrence: US)
  Receive Date: 20140808
  Receipt Date: 20140808
  Transmission Date: 20150326
  Serious: No
  Sender: FDA-Public Use
  Company Number: US-BRISTOL-MYERS SQUIBB COMPANY-19727122

PATIENT
  Age: 81 Year
  Sex: Female

DRUGS (1)
  1. SPRYCEL (CML) TABS 20 MG [Suspect]
     Active Substance: DASATINIB
     Indication: CHRONIC MYELOID LEUKAEMIA
     Route: 048

REACTIONS (2)
  - Cough [Unknown]
  - Dyspnoea [Unknown]
